FAERS Safety Report 12667980 (Version 7)
Quarter: 2017Q1

REPORT INFORMATION
  Report Type: Spontaneous
  Country: NL (occurrence: NL)
  Receive Date: 20160819
  Receipt Date: 20170117
  Transmission Date: 20170428
  Serious: Yes (Hospitalization)
  Sender: FDA-Public Use
  Company Number: NL-BIOGEN-2016BI00270201

PATIENT
  Age: 50 Year
  Sex: Male

DRUGS (1)
  1. TYSABRI [Suspect]
     Active Substance: NATALIZUMAB
     Indication: MULTIPLE SCLEROSIS
     Route: 042
     Dates: start: 201011, end: 20160303

REACTIONS (4)
  - Urinary tract infection [Unknown]
  - Secondary progressive multiple sclerosis [Unknown]
  - Pneumonia [Unknown]
  - Gastric disorder [Unknown]

NARRATIVE: CASE EVENT DATE: 2016
